FAERS Safety Report 9278155 (Version 1)
Quarter: 2013Q2

REPORT INFORMATION
  Report Type: Report from Study
  Country: DE (occurrence: DE)
  Receive Date: 20130508
  Receipt Date: 20130508
  Transmission Date: 20140414
  Serious: Yes (Hospitalization)
  Sender: FDA-Public Use
  Company Number: DE-ELI_LILLY_AND_COMPANY-DE200603006715

PATIENT
  Sex: Female
  Weight: 53.8 kg

DRUGS (2)
  1. GEMCITABINE HYDROCHLORIDE [Suspect]
     Indication: BREAST CANCER
     Dosage: 1600 MG, OTHER
     Route: 042
     Dates: start: 20060316, end: 20060518
  2. DOCETAXEL [Suspect]
     Indication: BREAST CANCER
     Dosage: 120 MG, OTHER
     Route: 042
     Dates: start: 20060316, end: 20060501

REACTIONS (2)
  - Neutropenic infection [Recovered/Resolved]
  - Pyrexia [Recovered/Resolved]
